FAERS Safety Report 15215268 (Version 1)
Quarter: 2018Q3

REPORT INFORMATION
  Report Type: Report from Study
  Country: US (occurrence: US)
  Receive Date: 20180730
  Receipt Date: 20180730
  Transmission Date: 20181010
  Serious: Yes (Hospitalization)
  Sender: FDA-Public Use
  Company Number: PHEH2018US030619

PATIENT
  Sex: Female

DRUGS (1)
  1. MYFORTIC [Suspect]
     Active Substance: MYCOPHENOLATE SODIUM
     Indication: ORGAN TRANSPLANT
     Route: 065

REACTIONS (1)
  - Transplant rejection [Unknown]
